FAERS Safety Report 21617952 (Version 1)
Quarter: 2022Q4

REPORT INFORMATION
  Report Type: Report from Study
  Country: US (occurrence: US)
  Receive Date: 20221119
  Receipt Date: 20221119
  Transmission Date: 20230113
  Serious: No
  Sender: FDA-Public Use
  Company Number: US-ABBVIE-4173225

PATIENT
  Sex: Female

DRUGS (2)
  1. RINVOQ [Suspect]
     Active Substance: UPADACITINIB
     Indication: Rheumatoid arthritis
     Dosage: 15 MG
     Route: 048
     Dates: start: 20200301
  2. CALCIUM 500-VIT D3 [Concomitant]
     Indication: Product used for unknown indication

REACTIONS (2)
  - Therapeutic product effect incomplete [Unknown]
  - Rheumatoid arthritis [Not Recovered/Not Resolved]
